FAERS Safety Report 10139156 (Version 2)
Quarter: 2014Q2

REPORT INFORMATION
  Report Type: Spontaneous
  Country: JP (occurrence: JP)
  Receive Date: 20140429
  Receipt Date: 20140509
  Transmission Date: 20141212
  Serious: Yes (Other)
  Sender: FDA-Public Use
  Company Number: JP-SA-2014SA053144

PATIENT
  Age: 86 Year
  Sex: Female

DRUGS (1)
  1. BCG FOR IMMUNOTHERAPY [Suspect]
     Indication: BLADDER CANCER
     Route: 050

REACTIONS (6)
  - Hypersensitivity [Unknown]
  - Pneumonitis [Unknown]
  - Pleurisy [Unknown]
  - Pyrexia [Unknown]
  - Dyspnoea [Unknown]
  - Incorrect route of drug administration [Unknown]
